FAERS Safety Report 4510402-0 (Version None)
Quarter: 2004Q4

REPORT INFORMATION
  Report Type: 
  Country: None (occurrence: None)
  Receive Date: 20041122
  Receipt Date: 20041109
  Transmission Date: 20050328
  Serious: Yes (Hospitalization, Other)
  Sender: FDA-Public Use
  Company Number: 204059

PATIENT
  Age: 55 Year
  Sex: Female
  Weight: 56.6996 kg

DRUGS (4)
  1. AVONEX [Suspect]
     Indication: MULTIPLE SCLEROSIS
     Dosage: 30 MCG QW IM
     Route: 030
     Dates: start: 20000501, end: 20030101
  2. AVONEX [Suspect]
     Indication: MULTIPLE SCLEROSIS
     Dosage: 30 MCG QW IM
     Route: 030
     Dates: start: 20030101
  3. METAMUCIL-2 [Concomitant]
  4. MULTIVITAMIN [Concomitant]

REACTIONS (22)
  - ABDOMINAL PAIN UPPER [None]
  - ALOPECIA [None]
  - AUTOIMMUNE THYROIDITIS [None]
  - BACTERIAL INFECTION [None]
  - CONDITION AGGRAVATED [None]
  - DEPRESSION [None]
  - DIARRHOEA [None]
  - DIZZINESS [None]
  - DYSPNOEA [None]
  - EAR INFECTION [None]
  - ELECTROLYTE IMBALANCE [None]
  - FEELING HOT [None]
  - FLATULENCE [None]
  - INTESTINAL MASS [None]
  - MULTIPLE SCLEROSIS [None]
  - NAUSEA [None]
  - RESPIRATORY DISORDER [None]
  - SJOGREN'S SYNDROME [None]
  - TOOTH ABSCESS [None]
  - TOOTH FRACTURE [None]
  - URINE ODOUR ABNORMAL [None]
  - VAGINAL INFECTION [None]
